FAERS Safety Report 6619292-3 (Version None)
Quarter: 2010Q1

REPORT INFORMATION
  Report Type: 
  Country: None (occurrence: None)
  Receive Date: 20100303
  Receipt Date: 20100217
  Transmission Date: 20100710
  Serious: Yes (Hospitalization, Other)
  Sender: FDA-Public Use
  Company Number: 1000012089

PATIENT
  Age: 51 Year
  Sex: Female
  Weight: 80 kg

DRUGS (4)
  1. CITALOPRAM HYDROBROMIDE [Suspect]
     Dosage: (3 DOSAGE FORMS, ONCE), ORAL
     Route: 048
     Dates: start: 20100217, end: 20100217
  2. TAVOR (TABLETS) [Suspect]
     Dosage: 7-8 TABLETS (SINGLE DOSE) (ONCE), ORAL
     Route: 048
     Dates: start: 20100217, end: 20100217
  3. VALIUM [Suspect]
     Dosage: (3 DOSAGE FORMS, ONCE), ORAL
     Route: 048
     Dates: start: 20100217, end: 20100217
  4. ALCOHOL [Suspect]
     Dosage: (ONCE), ORAL
     Route: 048
     Dates: start: 20100217, end: 20100217

REACTIONS (4)
  - ALCOHOL POISONING [None]
  - DRUG ABUSE [None]
  - FATIGUE [None]
  - INTENTIONAL OVERDOSE [None]
